FAERS Safety Report 5600074-6 (Version None)
Quarter: 2007Q4

REPORT INFORMATION
  Report Type: 
  Country: None (occurrence: None)
  Receive Date: 20071226
  Receipt Date: 20070712
  Transmission Date: 20080405
  Serious: Yes (Other)
  Sender: FDA-Public Use
  Company Number: 2007-0012668

PATIENT
  Age: 35 Year
  Sex: Male
  Weight: 74.3899 kg

DRUGS (3)
  1. VIREAD [Suspect]
     Indication: HIV INFECTION
     Dosage: 300 MG, 1 IN 1 D, ORAL
     Route: 048
     Dates: start: 20050823, end: 20060417
  2. EMTRIVA [Concomitant]
  3. TMC-278 [Concomitant]

REACTIONS (1)
  - NEPHROPATHY TOXIC [None]
